FAERS Safety Report 5822966-5 (Version None)
Quarter: 2008Q3

REPORT INFORMATION
  Report Type: 
  Country: None (occurrence: None)
  Receive Date: 20080725
  Receipt Date: 20080718
  Transmission Date: 20090109
  Serious: Yes (Death)
  Sender: FDA-Public Use
  Company Number: A0739419A

PATIENT
  Age: 96 Year
  Sex: Male
  Weight: 80 kg

DRUGS (3)
  1. SERETIDE [Suspect]
     Indication: LUNG DISORDER
     Route: 055
     Dates: start: 20070101, end: 20080702
  2. COMBIVENT [Concomitant]
     Dates: start: 20070101, end: 20080702
  3. ACETYLCYSTEINE [Concomitant]
     Dates: start: 20050101, end: 20080702

REACTIONS (1)
  - MULTI-ORGAN FAILURE [None]
